FAERS Safety Report 9572146 (Version 1)
Quarter: 2013Q4

REPORT INFORMATION
  Report Type: Spontaneous
  Country: US (occurrence: US)
  Receive Date: 20131001
  Receipt Date: 20131001
  Transmission Date: 20140711
  Serious: No
  Sender: FDA-Public Use
  Company Number: US-BIOGENIDEC-2013BI067397

PATIENT
  Age: 41 Year
  Sex: Female

DRUGS (13)
  1. TECFIDERA [Suspect]
     Indication: PRODUCT USED FOR UNKNOWN INDICATION
     Route: 048
     Dates: start: 20130626, end: 20130702
  2. TECFIDERA [Suspect]
     Indication: PRODUCT USED FOR UNKNOWN INDICATION
     Route: 048
  3. PEPTO-BISMOL [Concomitant]
  4. GAS-X [Concomitant]
  5. OMPRAZOLE [Concomitant]
  6. GAVISCON [Concomitant]
  7. IMODIUM ADV [Concomitant]
  8. MECLIZINE [Concomitant]
  9. ASPIRIN [Concomitant]
  10. NUVIGIL [Concomitant]
  11. ONDANSETRON [Concomitant]
  12. EMETROL [Concomitant]
  13. GABAPENTIN [Concomitant]

REACTIONS (7)
  - Weight decreased [Unknown]
  - Abdominal distension [Unknown]
  - Decreased appetite [Unknown]
  - Flushing [Recovered/Resolved]
  - Abdominal pain upper [Not Recovered/Not Resolved]
  - Abdominal discomfort [Unknown]
  - Nausea [Unknown]
